FAERS Safety Report 24466691 (Version 3)
Quarter: 2024Q4

REPORT INFORMATION
  Report Type: Spontaneous
  Country: US (occurrence: US)
  Receive Date: 20241018
  Receipt Date: 20241210
  Transmission Date: 20250114
  Serious: No
  Sender: ROCHE
  Company Number: US-ROCHE-3547807

PATIENT
  Sex: Female

DRUGS (16)
  1. XOLAIR PFS [Suspect]
     Active Substance: OMALIZUMAB
     Indication: Asthma
     Dosage: STRENGTH: 150 MG?INJECT 150MG SUBCUTANEOUSLY EVERY 2 WEEKS, ADMINISTERED WITH 75MG SYRINGE TO MAKE T
     Route: 058
     Dates: start: 2022
  2. XOLAIR PFS [Suspect]
     Active Substance: OMALIZUMAB
     Route: 058
     Dates: start: 2022
  3. XOLAIR PFS [Suspect]
     Active Substance: OMALIZUMAB
     Route: 058
  4. ALBUTEROL SU AER 108 [Concomitant]
  5. 90, GABAPENTIN TAB 800MG [Concomitant]
  6. GLIPIZIDE [Concomitant]
     Active Substance: GLIPIZIDE
  7. HYDROCHLOROT TAB 50MG [Concomitant]
  8. LANTUS SOL 100UNIT/ML [Concomitant]
     Dosage: 100 UNIT
  9. LASIX TAB 80MG [Concomitant]
  10. LOSARTAN POT TAB 100MG [Concomitant]
  11. METFORMIN HC TAB 1000MG [Concomitant]
  12. MONTELLIKAST TAB 10MG [Concomitant]
  13. PANTOPRAZOLE TBE 40MG [Concomitant]
  14. PRAMIPEXOLE TB2 4.5MG [Concomitant]
  15. WELLBUTRIN S TB1 200MG [Concomitant]
  16. ZOLOFT TAB 100MG [Concomitant]

REACTIONS (7)
  - Dyspnoea exertional [Not Recovered/Not Resolved]
  - Psychiatric symptom [Not Recovered/Not Resolved]
  - Gastrointestinal disorder [Not Recovered/Not Resolved]
  - Diabetes mellitus [Not Recovered/Not Resolved]
  - Restless legs syndrome [Not Recovered/Not Resolved]
  - Depression [Not Recovered/Not Resolved]
  - Asthma [Not Recovered/Not Resolved]
